FAERS Safety Report 4987783-7 (Version None)
Quarter: 2006Q2

REPORT INFORMATION
  Report Type: 
  Country: None (occurrence: None)
  Receive Date: 20060501
  Receipt Date: 20060209
  Transmission Date: 20061013
  Serious: Yes (Hospitalization)
  Sender: FDA-Public Use
  Company Number: JP-AVENTIS-200610487JP

PATIENT
  Age: 68 Year
  Sex: Male
  Weight: 45.4 kg

DRUGS (14)
  1. LANTUS [Suspect]
     Indication: DIABETES MELLITUS NON-INSULIN-DEPENDENT
     Route: 058
     Dates: start: 20050616
  2. NOVORAPID [Suspect]
     Route: 058
  3. HUMALOG [Suspect]
     Route: 058
     Dates: start: 20050614, end: 20050616
  4. NOVOLIN R [Suspect]
     Route: 058
     Dates: start: 20050601, end: 20050614
  5. NOVOLIN R [Suspect]
     Route: 058
  6. OPTICLIK (INSULIN INJECTION PEN) [Suspect]
  7. ADENOCK [Concomitant]
     Indication: HYPERURICAEMIA
     Route: 048
  8. ALDACTONE [Concomitant]
     Indication: CIRRHOSIS ALCOHOLIC
     Route: 048
  9. LASIX [Concomitant]
     Indication: CIRRHOSIS ALCOHOLIC
     Route: 048
  10. LIVACT [Concomitant]
     Indication: CIRRHOSIS ALCOHOLIC
     Route: 048
  11. STARSIS [Concomitant]
     Indication: DIABETES MELLITUS NON-INSULIN-DEPENDENT
     Route: 048
     Dates: start: 20050629
  12. BASEN [Concomitant]
     Indication: DIABETES MELLITUS NON-INSULIN-DEPENDENT
     Route: 048
     Dates: start: 20050705
  13. NU-LOTAN [Concomitant]
     Indication: HYPERTENSION
     Route: 048
     Dates: start: 20050608
  14. DAIOU [Concomitant]
     Indication: CONSTIPATION
     Route: 048

REACTIONS (9)
  - BLOOD GLUCOSE INCREASED [None]
  - CIRRHOSIS ALCOHOLIC [None]
  - CONSTIPATION [None]
  - DEHYDRATION [None]
  - DRUG HYPERSENSITIVITY [None]
  - INJECTION SITE ERYTHEMA [None]
  - INJECTION SITE INDURATION [None]
  - ORTHOSTATIC HYPOTENSION [None]
  - RENAL IMPAIRMENT [None]
